FAERS Safety Report 13953419 (Version 1)
Quarter: 2017Q3

REPORT INFORMATION
  Report Type: Spontaneous
  Country: US (occurrence: None)
  Receive Date: 20170908
  Receipt Date: 20170908
  Transmission Date: 20171128
  Serious: Yes (Death)
  Sender: FDA-Public Use
  Company Number: None

PATIENT
  Age: 37 Year
  Sex: Female

DRUGS (7)
  1. ENOXAPARIN 40MG [Suspect]
     Active Substance: ENOXAPARIN
     Indication: RENAL CANCER
     Dosage: 1 PFS 2X DAILY SUBCUTANEOUSLY
     Route: 058
     Dates: start: 201708, end: 20170830
  2. HYD POL/CPM [Concomitant]
  3. AFINITOR [Suspect]
     Active Substance: EVEROLIMUS
     Route: 048
  4. OXYCODONE AND ACETAMINOPHEN [Concomitant]
     Active Substance: ACETAMINOPHEN\OXYCODONE HYDROCHLORIDE
  5. METHYLPHENID [Concomitant]
     Active Substance: METHYLPHENIDATE
  6. TESTO CYP [Concomitant]
  7. ENOXAPRIN [Concomitant]

REACTIONS (1)
  - Death [None]

NARRATIVE: CASE EVENT DATE: 20170830
